FAERS Safety Report 5076853-3 (Version None)
Quarter: 2006Q3

REPORT INFORMATION
  Report Type: 
  Country: None (occurrence: None)
  Receive Date: 20060807
  Receipt Date: 20060725
  Transmission Date: 20061208
  Serious: Yes (Other)
  Sender: FDA-Public Use
  Company Number: CHPA2006US07271

PATIENT
  Age: 46 Year
  Sex: Male
  Weight: 90.7 kg

DRUGS (4)
  1. NICOTINE [Suspect]
     Indication: SMOKING CESSATION THERAPY
     Dosage: 14 MG, QD, TRANSDERMAL
     Route: 062
     Dates: start: 20060718, end: 20060720
  2. WELLBUTRIN [Concomitant]
  3. TRAZODONE HCL [Concomitant]
  4. PRILOSEC [Concomitant]

REACTIONS (7)
  - ASTHENIA [None]
  - DRUG TOXICITY [None]
  - DYSPNOEA [None]
  - HEADACHE [None]
  - HEART RATE INCREASED [None]
  - NAUSEA [None]
  - VISION BLURRED [None]
